FAERS Safety Report 6147822-7 (Version None)
Quarter: 2009Q2

REPORT INFORMATION
  Report Type: 
  Country: None (occurrence: None)
  Receive Date: 20090408
  Receipt Date: 20090407
  Transmission Date: 20091009
  Serious: Yes (Hospitalization)
  Sender: FDA-Public Use
  Company Number: US-BAYER-200910241NA

PATIENT
  Age: 36 Year
  Sex: Female

DRUGS (2)
  1. MIRENA [Suspect]
     Indication: CONTRACEPTION
     Dosage: AS USED: 20 ?G
     Route: 015
     Dates: start: 20081120, end: 20081223
  2. MIRENA [Suspect]
     Dosage: AS USED: 20 ?G
     Route: 015
     Dates: start: 20081223, end: 20081223

REACTIONS (1)
  - UTERINE RUPTURE [None]
